FAERS Safety Report 5128106-2 (Version None)
Quarter: 2006Q4

REPORT INFORMATION
  Report Type: 
  Country: None (occurrence: None)
  Receive Date: 20061017
  Receipt Date: 20061009
  Transmission Date: 20070319
  Serious: Yes (Hospitalization)
  Sender: FDA-Public Use
  Company Number: US-SOLVAY-00206003264

PATIENT
  Age: 9950 Day
  Sex: Male
  Weight: 75.6 kg

DRUGS (5)
  1. KEPPRA [Concomitant]
     Indication: CONVULSION
     Dosage: DAILY DOSE: 1000 MILLIGRAM(S)
     Route: 048
     Dates: start: 20051006
  2. DRONABINOL [Suspect]
     Indication: NAUSEA
     Dosage: DAILY DOSE: 10 MILLIGRAM(S)
     Route: 048
     Dates: start: 20060702, end: 20060705
  3. DRONABINOL [Suspect]
     Dosage: DAILY DOSE: 2.5 MILLIGRAM(S)
     Route: 048
     Dates: start: 20060706, end: 20060813
  4. ZOFRAN [Concomitant]
     Indication: NAUSEA
     Dosage: DAILY DOSE:  UNKNOWN
     Route: 048
     Dates: start: 20040805
  5. CCNU [Concomitant]
     Indication: BRAIN NEOPLASM
     Dosage: DAILY DOSE:  UNKNOWN
     Route: 048
     Dates: start: 20060703

REACTIONS (1)
  - WOUND INFECTION STAPHYLOCOCCAL [None]
